FAERS Safety Report 21349015 (Version 1)
Quarter: 2022Q3

REPORT INFORMATION
  Report Type: Spontaneous
  Country: FR (occurrence: FR)
  Receive Date: 20220919
  Receipt Date: 20220919
  Transmission Date: 20221027
  Serious: Yes (Hospitalization)
  Sender: FDA-Public Use
  Company Number: FR-AFSSAPS-LL20222547

PATIENT
  Age: 77 Year
  Sex: Male

DRUGS (3)
  1. MORPHINE [Suspect]
     Active Substance: MORPHINE
     Indication: Parotidectomy
     Dosage: UNK
     Route: 042
     Dates: start: 20220817, end: 20220817
  2. ACETAMINOPHEN\CODEINE PHOSPHATE [Suspect]
     Active Substance: ACETAMINOPHEN\CODEINE PHOSPHATE
     Indication: Parotidectomy
     Dosage: UNK
     Route: 048
     Dates: start: 20220817, end: 20220818
  3. PROPOFOL [Suspect]
     Active Substance: PROPOFOL
     Indication: Parotidectomy
     Dosage: UNK
     Route: 042
     Dates: start: 20220817, end: 20220817

REACTIONS (1)
  - Pancreatitis acute [Not Recovered/Not Resolved]

NARRATIVE: CASE EVENT DATE: 20220818
